FAERS Safety Report 10953070 (Version 1)
Quarter: 2015Q1

REPORT INFORMATION
  Report Type: Spontaneous
  Country: US (occurrence: US)
  Receive Date: 20150325
  Receipt Date: 20150325
  Transmission Date: 20150721
  Serious: Yes (Death, Other)
  Sender: FDA-Public Use
  Company Number: US-CIPLA LTD.-2015US02379

PATIENT

DRUGS (4)
  1. ETHANOL [Suspect]
     Active Substance: ALCOHOL
  2. SERTRALINE [Suspect]
     Active Substance: SERTRALINE HYDROCHLORIDE
  3. CARBAMAZEPINE. [Suspect]
     Active Substance: CARBAMAZEPINE
  4. METOPROLOL [Suspect]
     Active Substance: METOPROLOL

REACTIONS (3)
  - Completed suicide [Fatal]
  - Respiratory arrest [Unknown]
  - Cardiac arrest [Unknown]
